FAERS Safety Report 24113030 (Version 2)
Quarter: 2024Q3

REPORT INFORMATION
  Report Type: Spontaneous
  Country: US (occurrence: US)
  Receive Date: 20240719
  Receipt Date: 20240824
  Transmission Date: 20241016
  Serious: No
  Sender: GLAXOSMITHKLINE
  Company Number: US-GSKCCFUS-Case-02051913_AE-113619

PATIENT
  Age: 84 Year
  Sex: Male

DRUGS (2)
  1. TRELEGY ELLIPTA [Suspect]
     Active Substance: FLUTICASONE FUROATE\UMECLIDINIUM BROMIDE\VILANTEROL TRIFENATATE
     Indication: Chronic obstructive pulmonary disease
     Dosage: UNK, QD, 100/62.5/25 MCG
     Route: 055
  2. IPRATROPIUM BR [Concomitant]
     Indication: Product used for unknown indication
     Dosage: UNK, BID, 5MG/3MG

REACTIONS (4)
  - Peripheral swelling [Not Recovered/Not Resolved]
  - Cardiovascular disorder [Unknown]
  - Anxiety [Unknown]
  - Product dose omission issue [Unknown]

NARRATIVE: CASE EVENT DATE: 20231201
